FAERS Safety Report 5143294-X (Version None)
Quarter: 2006Q4

REPORT INFORMATION
  Report Type: 
  Country: None (occurrence: None)
  Receive Date: 20061103
  Receipt Date: 20061025
  Transmission Date: 20070319
  Serious: Yes (Disabling, Other)
  Sender: FDA-Public Use
  Company Number: 2006AP05171

PATIENT
  Age: 70 Year
  Sex: Male

DRUGS (5)
  1. ANAPEINE [Suspect]
     Indication: EPIDURAL ANAESTHESIA
     Route: 008
  2. PROPOFOL [Suspect]
     Indication: GENERAL ANAESTHESIA
     Route: 042
  3. SEVOFLURANE [Concomitant]
     Indication: GENERAL ANAESTHESIA
  4. VECURONIUM BROMIDE [Concomitant]
     Indication: GENERAL ANAESTHESIA
  5. FENTANYL CITRATE [Concomitant]
     Indication: GENERAL ANAESTHESIA

REACTIONS (2)
  - AMYOTROPHIC LATERAL SCLEROSIS [None]
  - INTERVERTEBRAL DISC PROTRUSION [None]
